FAERS Safety Report 10008861 (Version 1)
Quarter: 2014Q1

REPORT INFORMATION
  Report Type: Spontaneous
  Country: FR (occurrence: FR)
  Receive Date: 20140313
  Receipt Date: 20140313
  Transmission Date: 20141002
  Serious: Yes (Other)
  Sender: FDA-Public Use
  Company Number: PHHY2014FR028685

PATIENT
  Age: 37 Year
  Sex: Male

DRUGS (2)
  1. PREDNISONE [Suspect]
     Indication: POLYARTHRITIS
     Dosage: 10 MG
     Route: 048
     Dates: start: 2003
  2. HYDROXYCHLOROQUINE [Concomitant]
     Dates: start: 2003

REACTIONS (2)
  - Retinal detachment [Unknown]
  - Visual impairment [Unknown]
